FAERS Safety Report 7348533-2 (Version None)
Quarter: 2011Q1

REPORT INFORMATION
  Report Type: 
  Country: None (occurrence: None)
  Receive Date: 20110314
  Receipt Date: 20110307
  Transmission Date: 20110831
  Serious: Yes (Hospitalization)
  Sender: FDA-Public Use
  Company Number: US-BIOGENIDEC-2011BI002723

PATIENT
  Age: 60 Year
  Sex: Female

DRUGS (8)
  1. CLONAZEPAM [Concomitant]
  2. ESTROGENIC SUBSTANCE [Concomitant]
  3. VALACYCLOVIR [Concomitant]
  4. BUPROPION [Concomitant]
  5. LEXAPRO [Concomitant]
  6. DETROL [Concomitant]
  7. TYSABRI [Suspect]
     Indication: MULTIPLE SCLEROSIS
     Route: 042
     Dates: start: 20090219
  8. LIPITOR [Concomitant]

REACTIONS (2)
  - CYSTITIS ESCHERICHIA [None]
  - PULMONARY EMBOLISM [None]
